FAERS Safety Report 9187856 (Version 1)
Quarter: 2013Q1

REPORT INFORMATION
  Report Type: Spontaneous
  Country: US (occurrence: US)
  Receive Date: 20130325
  Receipt Date: 20130325
  Transmission Date: 20140127
  Serious: Yes (Hospitalization, Other)
  Sender: FDA-Public Use
  Company Number: US-PFIZER INC-2013091832

PATIENT
  Age: 68 Year
  Sex: Female

DRUGS (3)
  1. OXALIPLATIN [Suspect]
     Indication: RECTAL ADENOCARCINOMA
     Dosage: UNK
  2. FLUOROURACIL [Concomitant]
     Indication: RECTAL ADENOCARCINOMA
  3. LEUCOVORIN [Concomitant]

REACTIONS (1)
  - Thrombotic thrombocytopenic purpura [Recovering/Resolving]
